FAERS Safety Report 4692505-3 (Version None)
Quarter: 2005Q2

REPORT INFORMATION
  Report Type: 
  Country: None (occurrence: None)
  Receive Date: 20050613
  Receipt Date: 20050223
  Transmission Date: 20051028
  Serious: No
  Sender: FDA-Public Use
  Company Number: 2005-00360

PATIENT
  Age: 54 Year
  Sex: Male
  Weight: 81.6 kg

DRUGS (8)
  1. VELCADE [Suspect]
     Indication: MULTIPLE MYELOMA
     Dosage: 1.30 MG/M2, INTRAVENOUS
     Route: 042
     Dates: start: 20040901, end: 20041215
  2. ZOMETA [Concomitant]
  3. ANTIIFLAMMATORY/ANTIRHEUMATIC PRODUCTS [Concomitant]
  4. NARCOTICS [Concomitant]
  5. VITAMIN B6 [Concomitant]
  6. VITAMIN B12 [Concomitant]
  7. VITAMIN C (ASCORBIC ACID) [Concomitant]
  8. FOLIC ACID [Concomitant]

REACTIONS (1)
  - NEUROPATHY PERIPHERAL [None]
